FAERS Safety Report 18534157 (Version 1)
Quarter: 2020Q4

REPORT INFORMATION
  Report Type: Report from Study
  Country: US (occurrence: US)
  Receive Date: 20201123
  Receipt Date: 20201123
  Transmission Date: 20210114
  Serious: No
  Sender: FDA-Public Use
  Company Number: NVSC2020US305664

PATIENT
  Sex: Female

DRUGS (1)
  1. VALSARTAN. [Suspect]
     Active Substance: VALSARTAN
     Indication: BLOOD PRESSURE DECREASED
     Dosage: 160 MG
     Route: 065
     Dates: start: 202004

REACTIONS (2)
  - Dizziness [Unknown]
  - Blood pressure increased [Unknown]
